FAERS Safety Report 15151469 (Version 1)
Quarter: 2018Q4

REPORT INFORMATION
  Report Type: Spontaneous
  Country: US (occurrence: US)
  Receive Date: 20180716
  Receipt Date: 20180716
  Transmission Date: 20190204
  Serious: Yes (Other)
  Sender: FDA-Public Use
  Company Number: US-GILEAD-2018-0349782

PATIENT

DRUGS (1)
  1. YESCARTA [Suspect]
     Active Substance: AXICABTAGENE CILOLEUCEL
     Indication: PRODUCT USED FOR UNKNOWN INDICATION
     Dosage: UNK
     Route: 042
     Dates: start: 20180509, end: 20180509

REACTIONS (11)
  - Seizure [Recovered/Resolved]
  - Dysgraphia [Unknown]
  - Somnolence [Unknown]
  - Infection [Recovered/Resolved]
  - Pancytopenia [Not Recovered/Not Resolved]
  - Confusional state [Unknown]
  - Headache [Recovered/Resolved]
  - Depressed level of consciousness [Unknown]
  - Pyrexia [Recovered/Resolved]
  - Slow speech [Unknown]
  - Vision blurred [Unknown]

NARRATIVE: CASE EVENT DATE: 20180510
